FAERS Safety Report 7474960-9 (Version None)
Quarter: 2011Q2

REPORT INFORMATION
  Report Type: 
  Country: None (occurrence: None)
  Receive Date: 20110512
  Receipt Date: 20110510
  Transmission Date: 20111010
  Serious: Yes (Hospitalization)
  Sender: FDA-Public Use
  Company Number: FR-EISAI INC-E2090-01606-SPO-FR

PATIENT
  Age: 20 Year
  Sex: Female

DRUGS (5)
  1. ZONEGRAN [Suspect]
     Dosage: UNKNOWN
     Route: 048
     Dates: start: 20091001, end: 20090101
  2. ZONEGRAN [Suspect]
     Route: 048
     Dates: start: 20090101, end: 20090101
  3. ZONEGRAN [Suspect]
     Dosage: PROGRESSIVE DOSE DECREASE
     Route: 048
     Dates: start: 20090101, end: 20100601
  4. TRILEPTAL [Concomitant]
  5. BENZODIAZEPINE [Concomitant]

REACTIONS (4)
  - SPEECH DISORDER [None]
  - AGITATION [None]
  - RESTLESSNESS [None]
  - PSYCHOTIC DISORDER [None]
